FAERS Safety Report 21444812 (Version 3)
Quarter: 2023Q1

REPORT INFORMATION
  Report Type: Spontaneous
  Country: ES (occurrence: ES)
  Receive Date: 20221012
  Receipt Date: 20230207
  Transmission Date: 20230417
  Serious: Yes (Other)
  Sender: FDA-Public Use
  Company Number: ES-PFIZER INC-202201177484

PATIENT
  Age: 30 Month
  Sex: Female

DRUGS (62)
  1. PHENYTOIN [Suspect]
     Active Substance: PHENYTOIN
     Indication: Generalised tonic-clonic seizure
     Dosage: UNK
     Route: 065
  2. PHENYTOIN [Suspect]
     Active Substance: PHENYTOIN
     Indication: Epileptic encephalopathy
  3. PHENYTOIN [Suspect]
     Active Substance: PHENYTOIN
     Indication: Tonic convulsion
  4. PHENYTOIN [Suspect]
     Active Substance: PHENYTOIN
     Indication: Partial seizures
  5. PHENYTOIN [Suspect]
     Active Substance: PHENYTOIN
     Indication: Myoclonic epilepsy
  6. LEVETIRACETAM [Suspect]
     Active Substance: LEVETIRACETAM
     Indication: Generalised tonic-clonic seizure
     Dosage: UNK
     Route: 065
  7. LEVETIRACETAM [Suspect]
     Active Substance: LEVETIRACETAM
     Indication: Epileptic encephalopathy
  8. LEVETIRACETAM [Suspect]
     Active Substance: LEVETIRACETAM
     Indication: Tonic convulsion
  9. LEVETIRACETAM [Suspect]
     Active Substance: LEVETIRACETAM
     Indication: Partial seizures
  10. LEVETIRACETAM [Suspect]
     Active Substance: LEVETIRACETAM
     Indication: Myoclonic epilepsy
  11. VIGABATRIN [Suspect]
     Active Substance: VIGABATRIN
     Indication: Generalised tonic-clonic seizure
     Dosage: 140 MILLIGRAM/KILOGRAM, QD, 140 MG/KG, DAILY
     Route: 065
  12. VIGABATRIN [Suspect]
     Active Substance: VIGABATRIN
     Indication: Epileptic encephalopathy
  13. VIGABATRIN [Suspect]
     Active Substance: VIGABATRIN
     Indication: Tonic convulsion
  14. VIGABATRIN [Suspect]
     Active Substance: VIGABATRIN
     Indication: Partial seizures
  15. VIGABATRIN [Suspect]
     Active Substance: VIGABATRIN
     Indication: Myoclonic epilepsy
  16. LEUCOVORIN [Suspect]
     Active Substance: LEUCOVORIN
     Indication: Generalised tonic-clonic seizure
     Dosage: UNK
     Route: 065
  17. LEUCOVORIN [Suspect]
     Active Substance: LEUCOVORIN
     Indication: Epileptic encephalopathy
  18. LEUCOVORIN [Suspect]
     Active Substance: LEUCOVORIN
     Indication: Tonic convulsion
  19. LEUCOVORIN [Suspect]
     Active Substance: LEUCOVORIN
     Indication: Partial seizures
  20. LEUCOVORIN [Suspect]
     Active Substance: LEUCOVORIN
     Indication: Myoclonic epilepsy
  21. BIOTIN [Suspect]
     Active Substance: BIOTIN
     Indication: Generalised tonic-clonic seizure
     Dosage: UNK
     Route: 065
  22. BIOTIN [Suspect]
     Active Substance: BIOTIN
     Indication: Epileptic encephalopathy
  23. BIOTIN [Suspect]
     Active Substance: BIOTIN
     Indication: Tonic convulsion
  24. BIOTIN [Suspect]
     Active Substance: BIOTIN
     Indication: Partial seizures
  25. BIOTIN [Suspect]
     Active Substance: BIOTIN
     Indication: Myoclonic epilepsy
  26. PYRIDOXINE [Suspect]
     Active Substance: PYRIDOXINE
     Indication: Generalised tonic-clonic seizure
     Dosage: UNK
     Route: 065
  27. PYRIDOXINE [Suspect]
     Active Substance: PYRIDOXINE
     Indication: Epileptic encephalopathy
  28. PYRIDOXINE [Suspect]
     Active Substance: PYRIDOXINE
     Indication: Tonic convulsion
  29. PYRIDOXINE [Suspect]
     Active Substance: PYRIDOXINE
     Indication: Partial seizures
  30. PYRIDOXINE [Suspect]
     Active Substance: PYRIDOXINE
     Indication: Myoclonic epilepsy
  31. VALPROIC ACID [Suspect]
     Active Substance: VALPROIC ACID
     Indication: Generalised tonic-clonic seizure
     Dosage: UNK
     Route: 065
  32. VALPROIC ACID [Suspect]
     Active Substance: VALPROIC ACID
     Indication: Epileptic encephalopathy
  33. VALPROIC ACID [Suspect]
     Active Substance: VALPROIC ACID
     Indication: Tonic convulsion
  34. VALPROIC ACID [Suspect]
     Active Substance: VALPROIC ACID
     Indication: Partial seizures
  35. VALPROIC ACID [Suspect]
     Active Substance: VALPROIC ACID
     Indication: Myoclonic epilepsy
  36. CLONAZEPAM [Suspect]
     Active Substance: CLONAZEPAM
     Indication: Generalised tonic-clonic seizure
     Dosage: 0.04 MG/KG, DAY AT NIGHT
     Route: 065
  37. CLONAZEPAM [Suspect]
     Active Substance: CLONAZEPAM
     Indication: Epileptic encephalopathy
  38. CLONAZEPAM [Suspect]
     Active Substance: CLONAZEPAM
     Indication: Tonic convulsion
  39. CLONAZEPAM [Suspect]
     Active Substance: CLONAZEPAM
     Indication: Partial seizures
  40. CLONAZEPAM [Suspect]
     Active Substance: CLONAZEPAM
     Indication: Myoclonic epilepsy
  41. OXCARBAZEPINE [Suspect]
     Active Substance: OXCARBAZEPINE
     Indication: Generalised tonic-clonic seizure
     Dosage: 20 MILLIGRAM/KILOGRAM, QD, 20 MG/KG, DAILY
     Route: 065
  42. OXCARBAZEPINE [Suspect]
     Active Substance: OXCARBAZEPINE
     Indication: Epileptic encephalopathy
  43. OXCARBAZEPINE [Suspect]
     Active Substance: OXCARBAZEPINE
     Indication: Tonic convulsion
  44. OXCARBAZEPINE [Suspect]
     Active Substance: OXCARBAZEPINE
     Indication: Partial seizures
  45. OXCARBAZEPINE [Suspect]
     Active Substance: OXCARBAZEPINE
     Indication: Myoclonic epilepsy
  46. TOPIRAMATE [Suspect]
     Active Substance: TOPIRAMATE
     Indication: Generalised tonic-clonic seizure
     Dosage: 3.13 MILLIGRAM/KILOGRAM, QD
     Route: 065
  47. TOPIRAMATE [Suspect]
     Active Substance: TOPIRAMATE
     Indication: Epileptic encephalopathy
  48. TOPIRAMATE [Suspect]
     Active Substance: TOPIRAMATE
     Indication: Tonic convulsion
  49. TOPIRAMATE [Suspect]
     Active Substance: TOPIRAMATE
     Indication: Partial seizures
  50. TOPIRAMATE [Suspect]
     Active Substance: TOPIRAMATE
     Indication: Myoclonic epilepsy
  51. CORTICOTROPIN [Suspect]
     Active Substance: CORTICOTROPIN
     Indication: Generalised tonic-clonic seizure
     Dosage: UNK
     Route: 030
  52. CORTICOTROPIN [Suspect]
     Active Substance: CORTICOTROPIN
     Indication: Epileptic encephalopathy
  53. CORTICOTROPIN [Suspect]
     Active Substance: CORTICOTROPIN
     Indication: Tonic convulsion
  54. CORTICOTROPIN [Suspect]
     Active Substance: CORTICOTROPIN
     Indication: Partial seizures
  55. CORTICOTROPIN [Suspect]
     Active Substance: CORTICOTROPIN
     Indication: Myoclonic epilepsy
  56. FENFLURAMINE [Suspect]
     Active Substance: FENFLURAMINE
     Indication: Epileptic encephalopathy
     Dosage: 2 MG/KG QD, LATER TITRATED UPTO 0.7 MG/KG/DAY
     Route: 065
  57. FENFLURAMINE [Suspect]
     Active Substance: FENFLURAMINE
     Dosage: 0.7 MILLIGRAM/KILOGRAM, QD
     Route: 065
  58. ZONISAMIDE [Concomitant]
     Active Substance: ZONISAMIDE
     Indication: Generalised tonic-clonic seizure
     Dosage: 100 MILLIGRAM, BID, 100 MG, 2X/DAY
     Route: 065
  59. ZONISAMIDE [Concomitant]
     Active Substance: ZONISAMIDE
     Indication: Epileptic encephalopathy
  60. ZONISAMIDE [Concomitant]
     Active Substance: ZONISAMIDE
     Indication: Tonic convulsion
  61. ZONISAMIDE [Concomitant]
     Active Substance: ZONISAMIDE
     Indication: Partial seizures
  62. ZONISAMIDE [Concomitant]
     Active Substance: ZONISAMIDE
     Indication: Myoclonic epilepsy

REACTIONS (3)
  - Treatment failure [Recovered/Resolved]
  - Drug ineffective [Unknown]
  - Off label use [Unknown]
